FAERS Safety Report 6843053-3 (Version None)
Quarter: 2010Q3

REPORT INFORMATION
  Report Type: 
  Country: None (occurrence: None)
  Receive Date: 20100712
  Receipt Date: 20100708
  Transmission Date: 20110219
  Serious: Yes (Hospitalization)
  Sender: FDA-Public Use
  Company Number: 010093

PATIENT
  Sex: Female

DRUGS (17)
  1. CERTOLIZUMAB PEGOL [Suspect]
     Indication: RHEUMATOID ARTHRITIS
     Dosage: (200 MG 1X/2 WEEKS SUBCUTANEOUS), (200 MG 1X/MONTH SUBCUTANEOUS), (200 MG 1X/MONTH SUBCUTANEOUS)
     Route: 058
     Dates: start: 20091215, end: 20100126
  2. CERTOLIZUMAB PEGOL [Suspect]
     Indication: RHEUMATOID ARTHRITIS
     Dosage: (200 MG 1X/2 WEEKS SUBCUTANEOUS), (200 MG 1X/MONTH SUBCUTANEOUS), (200 MG 1X/MONTH SUBCUTANEOUS)
     Route: 058
     Dates: start: 20100223
  3. PREDNISONE [Concomitant]
  4. TRAMADOL HCL [Concomitant]
  5. FOLIC AICD [Concomitant]
  6. METHOTREXATE [Concomitant]
  7. POTASSIUM [Concomitant]
  8. PRAVASTATIN [Concomitant]
  9. CRESTOR [Concomitant]
  10. PEPCID [Concomitant]
  11. GAVISCON /01279001/ [Concomitant]
  12. ALEVE [Concomitant]
  13. CYCLOBENZAPRINE [Concomitant]
  14. CYMBALTA [Concomitant]
  15. HYDROCHLOROTHIAZIDE [Concomitant]
  16. METFORMIN HCL [Concomitant]
  17. GLIMEPRID [Concomitant]

REACTIONS (3)
  - HEPATIC STEATOSIS [None]
  - HEPATOMEGALY [None]
  - LOBAR PNEUMONIA [None]
